FAERS Safety Report 8504655-1 (Version None)
Quarter: 2012Q3

REPORT INFORMATION
  Report Type: 
  Country: None (occurrence: None)
  Receive Date: 20120711
  Receipt Date: 20120705
  Transmission Date: 20120928
  Serious: Yes (Hospitalization)
  Sender: FDA-Public Use
  Company Number: MX-ROCHE-1085161

PATIENT
  Sex: Female

DRUGS (6)
  1. MABTHERA [Suspect]
     Indication: NON-HODGKIN'S LYMPHOMA
     Route: 042
     Dates: start: 20100131
  2. MABTHERA [Suspect]
     Dates: start: 20120704
  3. CARBAMAZEPINE [Concomitant]
     Dates: start: 20120704
  4. CARBAMAZEPINE [Concomitant]
     Indication: NON-HODGKIN'S LYMPHOMA
     Route: 042
     Dates: start: 20100131
  5. PREDNISONE [Concomitant]
     Indication: NON-HODGKIN'S LYMPHOMA
     Route: 048
     Dates: start: 20120401
  6. EPIRUBICIN [Concomitant]
     Indication: NON-HODGKIN'S LYMPHOMA
     Route: 042
     Dates: start: 20100131

REACTIONS (4)
  - HAEMATOTOXICITY [None]
  - NEUTROPENIA [None]
  - PNEUMONIA [None]
  - ANAEMIA [None]
